FAERS Safety Report 15653785 (Version 1)
Quarter: 2018Q4

REPORT INFORMATION
  Report Type: Spontaneous
  Country: US (occurrence: US)
  Receive Date: 20181123
  Receipt Date: 20181123
  Transmission Date: 20190205
  Serious: Yes (Disabling)
  Sender: FDA-Public Use
  Company Number: None

PATIENT
  Age: 34 Year
  Sex: Male
  Weight: 85.5 kg

DRUGS (3)
  1. DEXTROMETHAMPHETAMINE [Concomitant]
  2. CLONAZEPAM. [Suspect]
     Active Substance: CLONAZEPAM
     Indication: PANIC DISORDER
     Dosage: ?          QUANTITY:1 TABLET(S);?
     Route: 048
     Dates: start: 20150101, end: 20180915
  3. MIRTAZAPINE. [Concomitant]
     Active Substance: MIRTAZAPINE

REACTIONS (8)
  - Paraesthesia [None]
  - Paraesthesia oral [None]
  - Obsessive thoughts [None]
  - Drug withdrawal syndrome [None]
  - Speech disorder [None]
  - Coordination abnormal [None]
  - Drug dependence [None]
  - Disturbance in attention [None]

NARRATIVE: CASE EVENT DATE: 20180916
